FAERS Safety Report 11241198 (Version 2)
Quarter: 2015Q3

REPORT INFORMATION
  Report Type: Spontaneous
  Country: US (occurrence: US)
  Receive Date: 20150706
  Receipt Date: 20150811
  Transmission Date: 20151125
  Serious: No
  Sender: FDA-Public Use
  Company Number: US-BAXTER-2015BAX034670

PATIENT
  Sex: Female

DRUGS (1)
  1. 3% SODIUM CHLORIDE INJECTION [Suspect]
     Active Substance: SODIUM CHLORIDE
     Indication: WOUND TREATMENT
     Route: 061
     Dates: start: 20150619, end: 20150619

REACTIONS (2)
  - Oedema [Recovering/Resolving]
  - Wrong drug administered [Recovering/Resolving]

NARRATIVE: CASE EVENT DATE: 20150619
